FAERS Safety Report 10051871 (Version 2)
Quarter: 2014Q2

REPORT INFORMATION
  Report Type: Spontaneous
  Country: US (occurrence: US)
  Receive Date: 20140402
  Receipt Date: 20140408
  Transmission Date: 20141212
  Serious: Yes (Other)
  Sender: FDA-Public Use
  Company Number: US-AMGEN-USASP2014022754

PATIENT
  Age: 76 Year
  Sex: Female
  Weight: 56.68 kg

DRUGS (2)
  1. ENBREL [Suspect]
     Indication: PSORIATIC ARTHROPATHY
     Dosage: 50 MG, QWK
     Route: 058
     Dates: start: 1999
  2. ENBREL [Suspect]
     Indication: PSORIASIS

REACTIONS (5)
  - Loss of consciousness [Unknown]
  - Coronary artery thrombosis [Unknown]
  - Condition aggravated [Unknown]
  - Pruritus [Unknown]
  - Psoriasis [Unknown]
